FAERS Safety Report 5700426-X (Version None)
Quarter: 2008Q2

REPORT INFORMATION
  Report Type: 
  Country: None (occurrence: None)
  Receive Date: 20080410
  Receipt Date: 20080407
  Transmission Date: 20081010
  Serious: Yes (Hospitalization)
  Sender: FDA-Public Use
  Company Number: US-KINGPHARMUSA00001-K200800339

PATIENT

DRUGS (2)
  1. CORGARD [Suspect]
     Dosage: 27 TABLETS, UNK
     Route: 048
     Dates: start: 20080316, end: 20080316
  2. DIAZEPAM [Suspect]
     Dosage: 45 MG, TOTAL 9 TABLETS
     Route: 048
     Dates: start: 20080316, end: 20080316

REACTIONS (2)
  - SOMNOLENCE [None]
  - SUICIDE ATTEMPT [None]
